FAERS Safety Report 25722790 (Version 1)
Quarter: 2025Q3

REPORT INFORMATION
  Report Type: Spontaneous
  Country: EU (occurrence: EU)
  Receive Date: 20250825
  Receipt Date: 20250825
  Transmission Date: 20251021
  Serious: Yes (Other)
  Sender: JOHNSON AND JOHNSON
  Company Number: EU-JNJFOC-20250823726

PATIENT
  Age: 68 Year
  Sex: Female

DRUGS (1)
  1. BALVERSA [Suspect]
     Active Substance: ERDAFITINIB
     Indication: Non-small cell lung cancer
     Route: 065
     Dates: start: 202507

REACTIONS (3)
  - Blood phosphorus abnormal [Unknown]
  - Product storage error [Unknown]
  - Off label use [Unknown]
